FAERS Safety Report 9020524 (Version 1)
Quarter: 2013Q1

REPORT INFORMATION
  Report Type: Spontaneous
  Country: US (occurrence: US)
  Receive Date: 20130119
  Receipt Date: 20130119
  Transmission Date: 20140127
  Serious: No
  Sender: FDA-Public Use
  Company Number: US-ALLERGAN-1207681US

PATIENT
  Age: 62 Year
  Sex: Female

DRUGS (4)
  1. BOTOX COSMETIC [Suspect]
     Indication: SKIN WRINKLING
     Dosage: 20 UNITS, SINGLE
     Route: 030
     Dates: start: 20120524, end: 20120524
  2. BOTOX COSMETIC [Suspect]
     Dosage: 7.5 UNITS, SINGLE
     Route: 030
     Dates: start: 20120612, end: 20120612
  3. MULTIVITAMIN                       /00097801/ [Concomitant]
     Indication: SUPPLEMENTATION THERAPY
     Dosage: UNK
     Route: 048
  4. CALCIUM [Concomitant]
     Indication: SUPPLEMENTATION THERAPY
     Dosage: UNK
     Route: 048

REACTIONS (2)
  - Accidental exposure to product [Recovered/Resolved]
  - Therapeutic response decreased [Unknown]
